FAERS Safety Report 14481603 (Version 6)
Quarter: 2018Q3

REPORT INFORMATION
  Report Type: Spontaneous
  Country: CA (occurrence: CA)
  Receive Date: 20180202
  Receipt Date: 20180831
  Transmission Date: 20181010
  Serious: Yes (Other)
  Sender: FDA-Public Use
  Company Number: CA-PFIZER INC-2017113320

PATIENT
  Age: 77 Year
  Sex: Female

DRUGS (3)
  1. XELJANZ [Suspect]
     Active Substance: TOFACITINIB CITRATE
     Dosage: 5 MG, TWICE A DAY
     Route: 048
     Dates: start: 20180314
  2. XELJANZ [Suspect]
     Active Substance: TOFACITINIB CITRATE
     Indication: RHEUMATOID ARTHRITIS
     Dosage: 5 MG, TWICE A DAY
     Route: 048
     Dates: end: 201703
  3. ARAVA [Concomitant]
     Active Substance: LEFLUNOMIDE
     Dosage: 1/2 DOSE

REACTIONS (5)
  - Drug ineffective [Recovering/Resolving]
  - Paraesthesia [Unknown]
  - Osteoarthritis [Not Recovered/Not Resolved]
  - Aortic aneurysm [Unknown]
  - Cystitis [Unknown]
